FAERS Safety Report 13034761 (Version 1)
Quarter: 2016Q4

REPORT INFORMATION
  Report Type: Spontaneous
  Country: JP (occurrence: JP)
  Receive Date: 20161216
  Receipt Date: 20161216
  Transmission Date: 20170207
  Serious: Yes (Other)
  Sender: FDA-Public Use
  Company Number: JP-JNJFOC-20090807903

PATIENT
  Sex: Female

DRUGS (1)
  1. NORETHINDRONE AND ETHINYL ESTRADIOL [Suspect]
     Active Substance: ETHINYL ESTRADIOL\NORETHINDRONE
     Indication: DYSMENORRHOEA
     Dosage: 0.035 MG ETHINYL ESTRADIOL AND 1 MG NORETHISTERONE FOR 4 CYCLES
     Route: 048

REACTIONS (10)
  - Uterine haemorrhage [Unknown]
  - Menstruation irregular [Unknown]
  - Nausea [Unknown]
  - Polymenorrhoea [Unknown]
  - Haemorrhage [Unknown]
  - Headache [Unknown]
  - Oligomenorrhoea [Unknown]
  - Menorrhagia [Unknown]
  - Abdominal pain lower [Unknown]
  - Uterine disorder [Unknown]
